FAERS Safety Report 7771502-5 (Version None)
Quarter: 2011Q3

REPORT INFORMATION
  Report Type: 
  Country: None (occurrence: None)
  Receive Date: 20110922
  Receipt Date: 20110920
  Transmission Date: 20111222
  Serious: Yes (Death, Other)
  Sender: FDA-Public Use
  Company Number: VE-PFIZER INC-2011217248

PATIENT
  Age: 67 Year
  Sex: Male

DRUGS (2)
  1. LIPITOR [Suspect]
     Dosage: UNK
  2. DAFLON [Concomitant]

REACTIONS (2)
  - RESPIRATORY ARREST [None]
  - PNEUMONIA [None]
